FAERS Safety Report 5117448-2 (Version None)
Quarter: 2006Q3

REPORT INFORMATION
  Report Type: 
  Country: None (occurrence: None)
  Receive Date: 20060929
  Receipt Date: 20060919
  Transmission Date: 20061208
  Serious: Yes (Other)
  Sender: FDA-Public Use
  Company Number: PHEH2006US11921

PATIENT
  Sex: Male

DRUGS (3)
  1. ENABLEX [Suspect]
  2. ANTIHYPERTENSIVES [Concomitant]
  3. STATINS [Concomitant]

REACTIONS (1)
  - ARRHYTHMIA [None]
